FAERS Safety Report 19673342 (Version 1)
Quarter: 2021Q3

REPORT INFORMATION
  Report Type: Spontaneous
  Country: GR (occurrence: GR)
  Receive Date: 20210809
  Receipt Date: 20210809
  Transmission Date: 20211014
  Serious: Yes (Other)
  Sender: FDA-Public Use
  Company Number: GR-UCBSA-2021036351

PATIENT
  Age: 76 Year
  Sex: Female

DRUGS (1)
  1. NEUPRO [Suspect]
     Active Substance: ROTIGOTINE
     Indication: PARKINSON^S DISEASE
     Dosage: 6 MILLIGRAM PER DAY
     Route: 062

REACTIONS (2)
  - Urticaria [Not Recovered/Not Resolved]
  - Application site erythema [Not Recovered/Not Resolved]
